FAERS Safety Report 11674717 (Version 1)
Quarter: 2015Q4

REPORT INFORMATION
  Report Type: Spontaneous
  Country: CH (occurrence: CH)
  Receive Date: 20151028
  Receipt Date: 20151028
  Transmission Date: 20160304
  Serious: Yes (Hospitalization, Other)
  Sender: FDA-Public Use
  Company Number: CH-PFIZER INC-2015354820

PATIENT
  Age: 83 Year
  Sex: Female

DRUGS (8)
  1. CARDIOASPIRIN [Concomitant]
     Active Substance: ASPIRIN
     Dosage: 100 MG, 1X/DAY
     Route: 048
  2. ELTROXIN [Concomitant]
     Active Substance: LEVOTHYROXINE
     Dosage: 0.05 MG, 1X/DAY
     Route: 048
  3. MAGNESIUM DIASPORAL [Concomitant]
     Dosage: 1 DF, 1X/DAY
     Route: 048
  4. VITAMIN D3 [Concomitant]
     Active Substance: CHOLECALCIFEROL
     Dosage: 10 GTT, 1X/DAY
     Route: 048
  5. VENTOLIN [Concomitant]
     Active Substance: ALBUTEROL SULFATE
     Dosage: 1FL TOGETHER WITH IPRATROPIUM BROMIDE (ATROVENT) 1FL TAKEN AS INHALATION 1X/DAY
  6. ATROVENT [Concomitant]
     Active Substance: IPRATROPIUM BROMIDE
     Dosage: 1FL TOGETHER SALBUTAMOL (VENTOLIN) 1FL TAKEN AS INHALATION 1X/DAY
  7. LYRICA [Suspect]
     Active Substance: PREGABALIN
     Indication: NEURALGIA
     Dosage: 50 MG, 1X/DAY
     Route: 048
  8. SYMBICORT [Concomitant]
     Active Substance: BUDESONIDE\FORMOTEROL FUMARATE DIHYDRATE
     Dosage: 200/6 TURBOHALER TAKEN AS INHALATION, 2X/DAY

REACTIONS (8)
  - Condition aggravated [Unknown]
  - Chronic obstructive pulmonary disease [Unknown]
  - Respiratory failure [Unknown]
  - Hypercapnia [Unknown]
  - Laceration [Unknown]
  - Fall [Unknown]
  - Head injury [Unknown]
  - Respiratory acidosis [Unknown]
